FAERS Safety Report 10476910 (Version 1)
Quarter: 2014Q3

REPORT INFORMATION
  Report Type: Spontaneous
  Country: US (occurrence: US)
  Receive Date: 20140926
  Receipt Date: 20140926
  Transmission Date: 20150326
  Serious: Yes (Hospitalization)
  Sender: FDA-Public Use
  Company Number: US-ACCORD-026080

PATIENT
  Age: 11 Year
  Sex: Male

DRUGS (4)
  1. BACLOFEN. [Concomitant]
     Active Substance: BACLOFEN
  2. DIAZEPAM. [Concomitant]
     Active Substance: DIAZEPAM
  3. PHENOBARBITAL. [Concomitant]
     Active Substance: PHENOBARBITAL
  4. TOPIRAMATE. [Suspect]
     Active Substance: TOPIRAMATE
     Indication: PRODUCT USED FOR UNKNOWN INDICATION

REACTIONS (7)
  - Coagulopathy [Recovering/Resolving]
  - Acute hepatic failure [Recovering/Resolving]
  - Acidosis [Recovering/Resolving]
  - Renal failure acute [Recovering/Resolving]
  - Hyperammonaemia [Recovering/Resolving]
  - Hypovolaemic shock [Recovering/Resolving]
  - Hepatic encephalopathy [Unknown]
